FAERS Safety Report 9865805 (Version 2)
Quarter: 2014Q1

REPORT INFORMATION
  Report Type: Spontaneous
  Country: US (occurrence: US)
  Receive Date: 20140203
  Receipt Date: 20140203
  Transmission Date: 20141002
  Serious: No
  Sender: FDA-Public Use
  Company Number: US-ALLERGAN-1310231US

PATIENT
  Age: 56 Year
  Sex: Female

DRUGS (1)
  1. RESTASIS [Suspect]
     Indication: DRY EYE
     Dosage: 2 GTT, UNK
     Route: 047

REACTIONS (7)
  - Eye allergy [Recovered/Resolved]
  - Lacrimation increased [Recovered/Resolved]
  - Vision blurred [Recovered/Resolved]
  - Instillation site pain [Recovered/Resolved]
  - Foreign body sensation in eyes [Recovered/Resolved]
  - Dry eye [Recovered/Resolved]
  - Eye pruritus [Recovered/Resolved]
